FAERS Safety Report 12364113 (Version 1)
Quarter: 2016Q2

REPORT INFORMATION
  Report Type: Spontaneous
  Country: SI (occurrence: SI)
  Receive Date: 20160513
  Receipt Date: 20160513
  Transmission Date: 20160815
  Serious: Yes (Hospitalization)
  Sender: FDA-Public Use
  Company Number: SI-SA-2016SA087787

PATIENT
  Age: 76 Year
  Sex: Female

DRUGS (1)
  1. CHLOROQUINE PHOSPHATE. [Suspect]
     Active Substance: CHLOROQUINE PHOSPHATE
     Indication: SJOGREN^S SYNDROME
     Route: 065

REACTIONS (21)
  - Restrictive cardiomyopathy [Recovering/Resolving]
  - Pulmonary hypertension [Recovering/Resolving]
  - Pulmonary arterial pressure increased [Recovering/Resolving]
  - Electrocardiogram abnormal [Recovered/Resolved]
  - Dyspnoea [Recovering/Resolving]
  - N-terminal prohormone brain natriuretic peptide increased [Recovering/Resolving]
  - Product use issue [Unknown]
  - Central venous pressure increased [Recovering/Resolving]
  - Left atrial dilatation [Recovering/Resolving]
  - Ventricular hypertrophy [Recovering/Resolving]
  - Right-to-left cardiac shunt [Recovering/Resolving]
  - Pleural effusion [Recovering/Resolving]
  - Systolic dysfunction [Recovering/Resolving]
  - Atrial septal defect acquired [Recovering/Resolving]
  - Cyanosis central [Recovering/Resolving]
  - Dilatation ventricular [Recovered/Resolved]
  - Right atrial dilatation [Recovering/Resolving]
  - Oxygen saturation decreased [Recovering/Resolving]
  - Troponin I increased [Recovering/Resolving]
  - Ejection fraction decreased [Recovering/Resolving]
  - Hypoxia [Recovered/Resolved]
